FAERS Safety Report 12948370 (Version 1)
Quarter: 2016Q4

REPORT INFORMATION
  Report Type: Spontaneous
  Country: US (occurrence: US)
  Receive Date: 20161116
  Receipt Date: 20161116
  Transmission Date: 20170207
  Serious: No
  Sender: FDA-Public Use
  Company Number: US-EISAI MEDICAL RESEARCH-EC-2016-022278

PATIENT
  Sex: Male

DRUGS (4)
  1. FYCOMPA [Suspect]
     Active Substance: PERAMPANEL
     Dosage: TITRATED UP
     Route: 048
  2. FYCOMPA [Suspect]
     Active Substance: PERAMPANEL
     Indication: PRODUCT USED FOR UNKNOWN INDICATION
     Dosage: UNKNOWN
     Route: 048
  3. FYCOMPA [Suspect]
     Active Substance: PERAMPANEL
     Route: 048
  4. FYCOMPA [Suspect]
     Active Substance: PERAMPANEL
     Route: 048

REACTIONS (3)
  - Somnolence [Recovering/Resolving]
  - Bradyphrenia [Recovering/Resolving]
  - Ataxia [Recovering/Resolving]
